FAERS Safety Report 25037480 (Version 5)
Quarter: 2025Q2

REPORT INFORMATION
  Report Type: Spontaneous
  Country: US (occurrence: US)
  Receive Date: 20250304
  Receipt Date: 20250624
  Transmission Date: 20250717
  Serious: Yes (Other)
  Sender: BOEHRINGER INGELHEIM
  Company Number: US-Komodo Health-a23aa0000065p3FAAQ

PATIENT
  Age: 79 Year
  Sex: Female
  Weight: 98.5 kg

DRUGS (4)
  1. MICARDIS [Suspect]
     Active Substance: TELMISARTAN
     Indication: Hypertension
     Dates: start: 201012, end: 20250210
  2. TELMISARTAN [Suspect]
     Active Substance: TELMISARTAN
     Indication: Hypertension
  3. ASPIRIN [Concomitant]
     Active Substance: ASPIRIN
     Indication: Product used for unknown indication
  4. VITAMIN D3 [Concomitant]
     Active Substance: CHOLECALCIFEROL
     Indication: Product used for unknown indication

REACTIONS (4)
  - Cerebrovascular accident [Recovered/Resolved]
  - Irritability [Recovered/Resolved]
  - Headache [Not Recovered/Not Resolved]
  - Nervousness [Not Recovered/Not Resolved]

NARRATIVE: CASE EVENT DATE: 20180101
